FAERS Safety Report 15484629 (Version 1)
Quarter: 2018Q4

REPORT INFORMATION
  Report Type: Report from Study
  Country: US (occurrence: US)
  Receive Date: 20181010
  Receipt Date: 20181010
  Transmission Date: 20190205
  Serious: Yes (Other)
  Sender: FDA-Public Use
  Company Number: US-SHIRE-US201838567

PATIENT
  Sex: Female
  Weight: 81 kg

DRUGS (1)
  1. GATTEX [Suspect]
     Active Substance: TEDUGLUTIDE\WATER
     Indication: SHORT-BOWEL SYNDROME
     Dosage: 0.202 ML, 1X/DAY:QD
     Route: 058

REACTIONS (3)
  - Stoma complication [Unknown]
  - Stoma obstruction [Unknown]
  - Stoma site pain [Unknown]
